FAERS Safety Report 10229079 (Version 2)
Quarter: 2014Q3

REPORT INFORMATION
  Report Type: Spontaneous
  Country: IT (occurrence: IT)
  Receive Date: 20140610
  Receipt Date: 20140721
  Transmission Date: 20150326
  Serious: Yes (Hospitalization)
  Sender: FDA-Public Use
  Company Number: IT-JNJFOC-20140600209

PATIENT
  Sex: Male

DRUGS (1)
  1. SIMETHICONE [Suspect]
     Active Substance: DIMETHICONE\SILICON DIOXIDE\SIMETHICONE
     Indication: ABDOMINAL PAIN
     Route: 048

REACTIONS (1)
  - Erythema [Recovering/Resolving]
